FAERS Safety Report 8314179 (Version 2)
Quarter: 2016Q4

REPORT INFORMATION
  Report Type: Spontaneous
  Country: US (occurrence: US)
  Receive Date: 20111228
  Receipt Date: 20161114
  Transmission Date: 20170207
  Serious: Yes (Hospitalization, Other)
  Sender: FDA-Public Use
  Company Number: US-ASTRAZENECA-2011SE77219

PATIENT
  Age: 66 Year
  Sex: Male
  Weight: 83.9 kg

DRUGS (7)
  1. SEROQUEL XR [Suspect]
     Active Substance: QUETIAPINE FUMARATE
     Indication: BIPOLAR DISORDER
     Route: 048
  2. SEROQUEL XR [Suspect]
     Active Substance: QUETIAPINE FUMARATE
     Indication: BIPOLAR DISORDER
     Dosage: 400 MG, TWO TABLETS AT NIGHT FOR A TOTAL NIGHTLY DOSE OF 800 MG
     Route: 048
     Dates: start: 2013, end: 20161103
  3. SEROQUEL XR [Suspect]
     Active Substance: QUETIAPINE FUMARATE
     Indication: BIPOLAR DISORDER
     Dosage: MISSING DOSES OR TAKING TWO DOSES AT ONCE
     Route: 048
  4. CITALOPRAM [Concomitant]
     Active Substance: CITALOPRAM HYDROBROMIDE
     Indication: ANTIDEPRESSANT THERAPY
     Route: 048
     Dates: start: 2013
  5. ROPINIROLE. [Concomitant]
     Active Substance: ROPINIROLE
     Indication: RESTLESS LEGS SYNDROME
     Route: 048
  6. MODAFINIL. [Concomitant]
     Active Substance: MODAFINIL
     Indication: NARCOLEPSY
     Route: 048
     Dates: start: 2015
  7. CLONAZEPAM. [Concomitant]
     Active Substance: CLONAZEPAM
     Indication: ANXIETY
     Dosage: CLONAZEPAM OR GENERIC KLONOPIN, 2 MG TABLETS, 1 TO 2 TABLETS TAKEN AT BEDTIME
     Route: 048
     Dates: start: 2013

REACTIONS (7)
  - Aneurysm [Unknown]
  - Drug dose omission [Unknown]
  - Suicidal ideation [Unknown]
  - Intentional product misuse [Unknown]
  - Abnormal behaviour [Unknown]
  - Mania [Unknown]
  - Product use issue [Unknown]

NARRATIVE: CASE EVENT DATE: 2014
